FAERS Safety Report 21009915 (Version 1)
Quarter: 2022Q2

REPORT INFORMATION
  Report Type: Spontaneous
  Country: US (occurrence: US)
  Receive Date: 20220627
  Receipt Date: 20220627
  Transmission Date: 20220721
  Serious: No
  Sender: FDA-Public Use
  Company Number: ALC2022US001171

PATIENT
  Sex: Female

DRUGS (1)
  1. PATADAY TWICE A DAY RELIEF [Suspect]
     Active Substance: OLOPATADINE HYDROCHLORIDE
     Indication: Product used for unknown indication
     Dosage: UNK
     Route: 047
     Dates: start: 202111

REACTIONS (3)
  - Eye inflammation [Recovered/Resolved]
  - Eye pain [Unknown]
  - Eye pruritus [Unknown]
